FAERS Safety Report 6241905-9 (Version None)
Quarter: 2009Q2

REPORT INFORMATION
  Report Type: 
  Country: None (occurrence: None)
  Receive Date: 20090622
  Receipt Date: 20090608
  Transmission Date: 20091009
  Serious: Yes (Death, Hospitalization)
  Sender: FDA-Public Use
  Company Number: MPS1-1000232

PATIENT
  Age: 8 Year
  Sex: Male
  Weight: 20 kg

DRUGS (1)
  1. ALDURAZYME [Suspect]
     Indication: MUCOPOLYSACCHARIDOSIS I
     Dates: end: 20080901

REACTIONS (1)
  - RESPIRATORY DISTRESS [None]
